FAERS Safety Report 5340733-6 (Version None)
Quarter: 2007Q2

REPORT INFORMATION
  Report Type: 
  Country: None (occurrence: None)
  Receive Date: 20070405
  Receipt Date: 20061221
  Transmission Date: 20071010
  Serious: No
  Sender: FDA-Public Use
  Company Number: US200612003561

PATIENT
  Age: 53 Year
  Sex: Female

DRUGS (2)
  1. CYMBALTA [Suspect]
     Indication: DEPRESSION
  2. PREDNISONE TAB [Concomitant]

REACTIONS (4)
  - ANOREXIA [None]
  - BASEDOW'S DISEASE [None]
  - DRUG WITHDRAWAL SYNDROME [None]
  - WEIGHT DECREASED [None]
